FAERS Safety Report 6082681-2 (Version None)
Quarter: 2009Q1

REPORT INFORMATION
  Report Type: 
  Country: None (occurrence: None)
  Receive Date: 20090202
  Receipt Date: 20070717
  Transmission Date: 20090719
  Serious: Yes (Hospitalization)
  Sender: FDA-Public Use
  Company Number: 263813

PATIENT
  Age: 48 Year
  Sex: Female
  Weight: 189 kg

DRUGS (2)
  1. NOVOLOG [Suspect]
     Indication: TYPE 1 DIABETES MELLITUS
     Dosage: 32 IU, BASAL QD, SUBCUTAN.-PUMP
     Route: 058
     Dates: start: 20050101
  2. NOVOLOG [Suspect]

REACTIONS (2)
  - BLOOD GLUCOSE INCREASED [None]
  - VOMITING [None]
